FAERS Safety Report 17872109 (Version 4)
Quarter: 2021Q1

REPORT INFORMATION
  Report Type: Spontaneous
  Country: FI (occurrence: FI)
  Receive Date: 20200608
  Receipt Date: 20210107
  Transmission Date: 20210419
  Serious: Yes (Hospitalization)
  Sender: FDA-Public Use
  Company Number: FI-EMD SERONO-E2B_90077843

PATIENT
  Age: 24 Year
  Sex: Female

DRUGS (2)
  1. MAVENCLAD [Suspect]
     Active Substance: CLADRIBINE
     Dosage: FIRST YEAR SECOND WEEK THERAPY: 20 MG ON DAY 1 AND 10 MG ON DAYS 1 TO 4.
     Route: 048
     Dates: start: 20200404, end: 20200408
  2. MAVENCLAD [Suspect]
     Active Substance: CLADRIBINE
     Indication: MULTIPLE SCLEROSIS
     Dosage: FIRST YEAR FIRST WEEK THERAPY: 20 MG ON DAY 1 AND 10 MG ON DAYS 1 TO 4.
     Route: 048
     Dates: start: 20200307, end: 20200311

REACTIONS (5)
  - Pancreatitis acute [Recovered/Resolved]
  - Platelet count decreased [Unknown]
  - Lymphocyte count decreased [Recovering/Resolving]
  - Cholelithiasis [Recovered/Resolved]
  - Alanine aminotransferase increased [Recovered/Resolved]

NARRATIVE: CASE EVENT DATE: 20200411
